FAERS Safety Report 5806328-2 (Version None)
Quarter: 2008Q3

REPORT INFORMATION
  Report Type: 
  Country: None (occurrence: None)
  Receive Date: 20080708
  Receipt Date: 20080609
  Transmission Date: 20090109
  Serious: Yes (Other)
  Sender: FDA-Public Use
  Company Number: US-1166189

PATIENT
  Age: 78 Year
  Sex: Female
  Weight: 70.7611 kg

DRUGS (10)
  1. TRAVATAN Z [Suspect]
     Indication: GLAUCOMA
     Dosage: (1 GTT OU QD OPHTHALMIC)
     Route: 047
     Dates: start: 20080507, end: 20080511
  2. ALPHAGAN [Suspect]
     Dosage: (OPHTHALMIC)
     Route: 047
  3. TIMOLOL MALEATE [Concomitant]
  4. QUINAPRIL [Concomitant]
  5. XANAX [Concomitant]
  6. FOLIC ACID [Concomitant]
  7. ATENOLOL [Concomitant]
  8. ISOSORBIDE DINITRATE [Concomitant]
  9. LIPITOR [Concomitant]
  10. CHLORTHALIDONE [Concomitant]

REACTIONS (3)
  - BLOOD PRESSURE INCREASED [None]
  - INTRAOCULAR PRESSURE INCREASED [None]
  - OPTIC NERVE INJURY [None]
